FAERS Safety Report 12800389 (Version 1)
Quarter: 2016Q3

REPORT INFORMATION
  Report Type: Spontaneous
  Country: US (occurrence: US)
  Receive Date: 20160930
  Receipt Date: 20160930
  Transmission Date: 20161109
  Serious: No
  Sender: FDA-Public Use
  Company Number: US-TEVA-694797USA

PATIENT
  Sex: Female
  Weight: 54.48 kg

DRUGS (2)
  1. QNASL [Suspect]
     Active Substance: BECLOMETHASONE DIPROPIONATE
     Dates: start: 201507
  2. XYZAL [Concomitant]
     Active Substance: LEVOCETIRIZINE DIHYDROCHLORIDE
     Indication: HYPERSENSITIVITY

REACTIONS (2)
  - Nasal ulcer [Not Recovered/Not Resolved]
  - Nasal discomfort [Not Recovered/Not Resolved]
